FAERS Safety Report 10024114 (Version 1)
Quarter: 2014Q1

REPORT INFORMATION
  Report Type: Spontaneous
  Country: US (occurrence: US)
  Receive Date: 20140320
  Receipt Date: 20140320
  Transmission Date: 20141002
  Serious: No
  Sender: FDA-Public Use
  Company Number: US-PFIZER INC-2014080899

PATIENT
  Sex: Female

DRUGS (1)
  1. PRISTIQ [Suspect]
     Dosage: UNK
     Dates: end: 2014

REACTIONS (4)
  - Withdrawal syndrome [Unknown]
  - Feeling abnormal [Unknown]
  - Disturbance in attention [Unknown]
  - Paraesthesia [Unknown]
